FAERS Safety Report 14974009 (Version 1)
Quarter: 2018Q2

REPORT INFORMATION
  Report Type: Spontaneous
  Country: AR (occurrence: AR)
  Receive Date: 20180605
  Receipt Date: 20180605
  Transmission Date: 20180711
  Serious: Yes (Hospitalization)
  Sender: FDA-Public Use
  Company Number: AR-PFIZER INC-2018224302

PATIENT
  Age: 79 Year
  Sex: Female

DRUGS (1)
  1. INLYTA [Suspect]
     Active Substance: AXITINIB
     Indication: RENAL CANCER
     Dosage: 5 MG, DAILY
     Dates: start: 20180108, end: 20180527

REACTIONS (4)
  - Dementia [Unknown]
  - Insomnia [Unknown]
  - Delirium [Unknown]
  - Neoplasm progression [Unknown]
